FAERS Safety Report 4615456-9 (Version None)
Quarter: 2005Q2

REPORT INFORMATION
  Report Type: 
  Country: None (occurrence: None)
  Receive Date: 20050311
  Receipt Date: 20041130
  Transmission Date: 20051028
  Serious: No
  Sender: FDA-Public Use
  Company Number: 2004-BP-08493BP

PATIENT
  Age: 66 Year
  Sex: Male

DRUGS (7)
  1. SPIRIVA [Suspect]
     Indication: CHRONIC OBSTRUCTIVE PULMONARY DISEASE
     Dosage: 18 MCG (18 MCG), IH
     Route: 055
     Dates: start: 20040817
  2. SPIRIVA [Suspect]
  3. XOPENEX [Concomitant]
  4. PULMICORT [Concomitant]
  5. BENZOATE + PHENYLACETATE [Concomitant]
  6. PREDNISONE [Concomitant]
  7. ACTONEL [Concomitant]

REACTIONS (1)
  - DRUG INEFFECTIVE [None]
